FAERS Safety Report 10300286 (Version 1)
Quarter: 2014Q3

REPORT INFORMATION
  Report Type: Spontaneous
  Country: PL (occurrence: PL)
  Receive Date: 20140712
  Receipt Date: 20140712
  Transmission Date: 20150326
  Serious: Yes (Hospitalization)
  Sender: FDA-Public Use
  Company Number: PHHY2014PL083767

PATIENT
  Age: 75 Year
  Sex: Male
  Weight: 78 kg

DRUGS (4)
  1. FLUOROURACIL EBEWE [Suspect]
     Active Substance: FLUOROURACIL
     Indication: COLON CANCER
     Dosage: 588 MG, UNK
     Route: 042
     Dates: start: 20140326
  2. FLUOROURACIL EBEWE [Suspect]
     Active Substance: FLUOROURACIL
     Dosage: 882 MG, UNK
     Dates: start: 20140326
  3. IRINOTECAN EBEWE [Suspect]
     Active Substance: IRINOTECAN
     Indication: COLON CANCER
     Dosage: 264 MG, UNK
     Route: 042
     Dates: start: 20140326
  4. LEUCOVORIN CALCIUM. [Suspect]
     Active Substance: LEUCOVORIN CALCIUM
     Indication: COLON CANCER
     Dosage: 294 MG, UNK
     Route: 042
     Dates: start: 20140326

REACTIONS (1)
  - Anaemia [Unknown]

NARRATIVE: CASE EVENT DATE: 20140423
